FAERS Safety Report 8178285-8 (Version None)
Quarter: 2012Q1

REPORT INFORMATION
  Report Type: 
  Country: None (occurrence: None)
  Receive Date: 20120126
  Receipt Date: 20111229
  Transmission Date: 20120608
  Serious: No
  Sender: FDA-Public Use
  Company Number: PHHY2011US53504

PATIENT
  Age: 6 Year
  Sex: Male

DRUGS (9)
  1. AFINITOR [Suspect]
     Indication: TUBEROUS SCLEROSIS
     Dosage: 5MG,DAILY, ORAL : 5 MG, ORAL : 5 MG, DAILY, ORAL
     Route: 048
     Dates: start: 20110504
  2. AFINITOR [Suspect]
     Indication: ASTROCYTOMA, LOW GRADE
     Dosage: 5MG,DAILY, ORAL : 5 MG, ORAL : 5 MG, DAILY, ORAL
     Route: 048
     Dates: start: 20110504
  3. AFINITOR [Suspect]
     Indication: TUBEROUS SCLEROSIS
     Dosage: 5MG,DAILY, ORAL : 5 MG, ORAL : 5 MG, DAILY, ORAL
     Route: 048
     Dates: start: 20110603
  4. AFINITOR [Suspect]
     Indication: ASTROCYTOMA, LOW GRADE
     Dosage: 5MG,DAILY, ORAL : 5 MG, ORAL : 5 MG, DAILY, ORAL
     Route: 048
     Dates: start: 20110603
  5. AFINITOR [Suspect]
     Indication: TUBEROUS SCLEROSIS
     Dosage: 5MG,DAILY, ORAL : 5 MG, ORAL : 5 MG, DAILY, ORAL
     Route: 048
     Dates: start: 20110516
  6. AFINITOR [Suspect]
     Indication: ASTROCYTOMA, LOW GRADE
     Dosage: 5MG,DAILY, ORAL : 5 MG, ORAL : 5 MG, DAILY, ORAL
     Route: 048
     Dates: start: 20110516
  7. VERAMYST (FLUTICASONE FUROATE) [Concomitant]
  8. ASTAPRO [Concomitant]
  9. ALLEGRA [Concomitant]

REACTIONS (3)
  - STOMATITIS [None]
  - MOUTH ULCERATION [None]
  - SWELLING [None]
